FAERS Safety Report 8006979-3 (Version None)
Quarter: 2011Q4

REPORT INFORMATION
  Report Type: 
  Country: None (occurrence: None)
  Receive Date: 20111216
  Receipt Date: 20111201
  Transmission Date: 20120403
  Serious: Yes (Other)
  Sender: FDA-Public Use
  Company Number: OMX-2011-00045

PATIENT
  Sex: Female

DRUGS (1)
  1. EVICEL [Suspect]
     Indication: HAEMOSTASIS
     Dosage: EPILESIONAL
     Dates: start: 20111108, end: 20111108

REACTIONS (2)
  - DRUG INEFFECTIVE [None]
  - POST PROCEDURAL HAEMORRHAGE [None]
